FAERS Safety Report 5623482-6 (Version None)
Quarter: 2008Q1

REPORT INFORMATION
  Report Type: 
  Country: None (occurrence: None)
  Receive Date: 20080212
  Receipt Date: 20080211
  Transmission Date: 20080703
  Serious: Yes (Other)
  Sender: FDA-Public Use
  Company Number: GB-WYE-G00937808

PATIENT
  Age: 34 Year
  Sex: Male

DRUGS (1)
  1. TYGACIL [Suspect]
     Indication: ACINETOBACTER INFECTION
     Dosage: UNKNOWN
     Dates: start: 20071201

REACTIONS (1)
  - ESCHERICHIA INFECTION [None]
